FAERS Safety Report 11990154 (Version 1)
Quarter: 2016Q1

REPORT INFORMATION
  Report Type: Spontaneous
  Country: US (occurrence: US)
  Receive Date: 20160202
  Receipt Date: 20160202
  Transmission Date: 20160526
  Serious: Yes (Other)
  Sender: FDA-Public Use
  Company Number: US-ROCHE-1597810

PATIENT
  Sex: Female

DRUGS (4)
  1. HERCEPTIN [Suspect]
     Active Substance: TRASTUZUMAB
     Indication: BREAST CANCER METASTATIC
     Route: 065
  2. TAXOTERE [Concomitant]
     Active Substance: DOCETAXEL
  3. PERJETA [Suspect]
     Active Substance: PERTUZUMAB
     Indication: BREAST CANCER METASTATIC
     Route: 065
  4. DIGOXIN-SPECIFIC ANTIBODY FRAGMENTS [Concomitant]
     Active Substance: DIGOXIN
     Route: 065

REACTIONS (1)
  - Cardiac output decreased [Recovering/Resolving]

NARRATIVE: CASE EVENT DATE: 201404
